FAERS Safety Report 6845206-7 (Version None)
Quarter: 2010Q3

REPORT INFORMATION
  Report Type: 
  Country: None (occurrence: None)
  Receive Date: 20100715
  Receipt Date: 20070817
  Transmission Date: 20110219
  Serious: No
  Sender: FDA-Public Use
  Company Number: US-PFIZER INC-2007069150

PATIENT
  Sex: Male
  Weight: 136.1 kg

DRUGS (8)
  1. CHANTIX [Suspect]
     Indication: SMOKING CESSATION THERAPY
     Route: 048
     Dates: start: 20070802
  2. LEXAPRO [Concomitant]
  3. BISOPROLOL [Concomitant]
  4. AMLODIPINE [Concomitant]
  5. ZOCOR [Concomitant]
  6. VYTORIN [Concomitant]
  7. PLAVIX [Concomitant]
  8. NEXIUM [Concomitant]

REACTIONS (3)
  - DIARRHOEA [None]
  - MALAISE [None]
  - PYREXIA [None]
